FAERS Safety Report 6276011-0 (Version None)
Quarter: 2009Q3

REPORT INFORMATION
  Report Type: 
  Country: None (occurrence: None)
  Receive Date: 20090720
  Receipt Date: 20090707
  Transmission Date: 20100115
  Serious: Yes (Hospitalization)
  Sender: FDA-Public Use
  Company Number: 1000001119

PATIENT
  Age: 66 Year
  Sex: Female

DRUGS (3)
  1. ESCITALOPRAM [Suspect]
     Indication: DEPRESSION
     Dosage: 10 MG (10 MG,1 IN 1 D),ORAL
     Route: 048
     Dates: start: 20060101, end: 20080804
  2. ESCITALOPRAM [Suspect]
     Indication: DEPRESSION
     Dosage: ORAL
     Route: 048
  3. RASAGILINE (TABLETS) [Suspect]
     Indication: PARKINSON'S DISEASE
     Dosage: 1 MG (1 MG,1 IN 1 D),ORAL
     Route: 048
     Dates: start: 20080404, end: 20080804

REACTIONS (5)
  - AGITATION [None]
  - CONFUSIONAL STATE [None]
  - DELUSION [None]
  - DRUG INTERACTION [None]
  - HALLUCINATION, VISUAL [None]
